FAERS Safety Report 9074029 (Version 1)
Quarter: 2013Q1

REPORT INFORMATION
  Report Type: Report from Study
  Country: US (occurrence: US)
  Receive Date: 20130128
  Receipt Date: 20130128
  Transmission Date: 20140127
  Serious: No
  Sender: FDA-Public Use
  Company Number: US-ABBOTT-12P-163-0918042-00

PATIENT
  Age: 48 Year
  Sex: Female

DRUGS (9)
  1. HUMIRA 40 MG/0.8 ML PEN [Suspect]
     Indication: PSORIATIC ARTHROPATHY
     Route: 058
     Dates: start: 201202
  2. AMBIEN [Concomitant]
     Indication: INSOMNIA
     Dosage: AT BEDTIME
  3. TRAZODONE [Concomitant]
     Indication: INSOMNIA
     Dosage: 1/2 TAB AT BEDTIME
  4. SOMA [Concomitant]
     Indication: ARTHRALGIA
     Dosage: 350 MG, 1-2 TABS DAILY
  5. XANAX [Concomitant]
     Indication: EMOTIONAL DISTRESS
     Dosage: 1 MG, 1-3 TABS DAILY
  6. LISINOPRIL [Concomitant]
     Indication: PRODUCT USED FOR UNKNOWN INDICATION
     Dosage: 40 MG, 1/2-1 TAB A DAY DEPENDING ON BLOOD PRESSURE
  7. PRAVASTATIN [Concomitant]
     Indication: BLOOD CHOLESTEROL INCREASED
     Dosage: 10 MG DAILY
  8. LEVOTHYROXINE [Concomitant]
     Indication: HYPOTHYROIDISM
     Dosage: 50 MCG DAILY
  9. ZYRTEC [Concomitant]
     Indication: HYPERSENSITIVITY
     Dosage: 2 TABS DAILY

REACTIONS (5)
  - Nasopharyngitis [Not Recovered/Not Resolved]
  - Hypersensitivity [Not Recovered/Not Resolved]
  - Nasal congestion [Not Recovered/Not Resolved]
  - Dysphonia [Not Recovered/Not Resolved]
  - Cough [Not Recovered/Not Resolved]
